FAERS Safety Report 15536616 (Version 1)
Quarter: 2018Q4

REPORT INFORMATION
  Report Type: Spontaneous
  Country: US (occurrence: US)
  Receive Date: 20181022
  Receipt Date: 20181022
  Transmission Date: 20190205
  Serious: Yes (Hospitalization)
  Sender: FDA-Public Use
  Company Number: None

PATIENT
  Age: 67 Year
  Sex: Male

DRUGS (5)
  1. ASPIRIN 325MG [Concomitant]
     Active Substance: ASPIRIN
  2. FOLIC ACID 1MG [Concomitant]
  3. TACROLIMUS. [Suspect]
     Active Substance: TACROLIMUS
     Indication: RENAL TRANSPLANT
     Dosage: 0.5 MG 2 IN AM + 1 IN PM; ORAL?
     Route: 048
     Dates: start: 20170725
  4. DESONIDE 0.05% [Concomitant]
  5. VITAMIN B12 100MCG [Concomitant]

REACTIONS (2)
  - Unevaluable event [None]
  - Product dose omission [None]

NARRATIVE: CASE EVENT DATE: 20181019
